FAERS Safety Report 25081711 (Version 2)
Quarter: 2025Q2

REPORT INFORMATION
  Report Type: Spontaneous
  Country: US (occurrence: US)
  Receive Date: 20250316
  Receipt Date: 20250421
  Transmission Date: 20250717
  Serious: Yes (Hospitalization)
  Sender: JOHNSON AND JOHNSON
  Company Number: US-VIIV HEALTHCARE-US2025027839

PATIENT
  Age: 33 Year
  Sex: Male
  Weight: 108.86 kg

DRUGS (3)
  1. RILPIVIRINE [Suspect]
     Active Substance: RILPIVIRINE
     Indication: HIV infection
     Route: 065
     Dates: start: 2022
  2. CABOTEGRAVIR [Suspect]
     Active Substance: CABOTEGRAVIR
     Indication: HIV infection
     Route: 065
     Dates: start: 2022
  3. VOCABRIA [Suspect]
     Active Substance: CABOTEGRAVIR SODIUM
     Indication: HIV infection
     Route: 048
     Dates: start: 202501

REACTIONS (1)
  - Cholecystectomy [Recovered/Resolved]

NARRATIVE: CASE EVENT DATE: 20250201
